FAERS Safety Report 8465179-3 (Version None)
Quarter: 2012Q2

REPORT INFORMATION
  Report Type: 
  Country: None (occurrence: None)
  Receive Date: 20120626
  Receipt Date: 20120418
  Transmission Date: 20120825
  Serious: Yes (Other)
  Sender: FDA-Public Use
  Company Number: CN-JNJFOC-20120506338

PATIENT
  Sex: Female
  Weight: 307 kg

DRUGS (3)
  1. PALIPERIDONE [Suspect]
     Route: 048
     Dates: end: 20110526
  2. PALIPERIDONE [Suspect]
     Indication: SCHIZOPHRENIA
     Route: 048
     Dates: start: 20110413
  3. PALIPERIDONE [Suspect]
     Route: 048
     Dates: start: 20090601

REACTIONS (1)
  - HEPATIC FUNCTION ABNORMAL [None]
